FAERS Safety Report 5159532-3 (Version None)
Quarter: 2006Q4

REPORT INFORMATION
  Report Type: 
  Country: None (occurrence: None)
  Receive Date: 20061120
  Receipt Date: 20061109
  Transmission Date: 20070319
  Serious: Yes (Other)
  Sender: FDA-Public Use
  Company Number: DE-2006-034852

PATIENT
  Age: 38 Year
  Sex: Female

DRUGS (1)
  1. MIRENA [Suspect]
     Dosage: 20 UG/DAY, INTRA-UTERINE
     Route: 015
     Dates: start: 19990101, end: 20040101

REACTIONS (1)
  - ADENOCARCINOMA OF THE CERVIX [None]
